FAERS Safety Report 4319457-X (Version None)
Quarter: 2004Q1

REPORT INFORMATION
  Report Type: 
  Country: None (occurrence: None)
  Receive Date: 20040318
  Receipt Date: 20040315
  Transmission Date: 20041129
  Serious: Yes (Death, Life-Threatening)
  Sender: FDA-Public Use
  Company Number: 7605

PATIENT
  Age: 8 Hour
  Sex: Female

DRUGS (9)
  1. ATRACURIUM BESYLATE [Suspect]
     Dosage: 380 MICROGRAM ONCE IV
     Route: 042
     Dates: start: 20040308
  2. DIAMORPHINE [Concomitant]
  3. FRUSEMIDE [Concomitant]
  4. GENTAMICIN [Concomitant]
  5. CAFFEINE [Concomitant]
  6. MAGNESIUM SULFATE [Concomitant]
  7. INDOMETHACIN [Concomitant]
  8. LUNG SURFACTANT PORCINE [Concomitant]
  9. FLUCLOXACILLIN [Concomitant]

REACTIONS (2)
  - BRADYCARDIA [None]
  - CARDIAC ARREST [None]
